FAERS Safety Report 8371048-X (Version None)
Quarter: 2012Q2

REPORT INFORMATION
  Report Type: 
  Country: None (occurrence: None)
  Receive Date: 20120518
  Receipt Date: 20120508
  Transmission Date: 20120825
  Serious: Yes (Other)
  Sender: FDA-Public Use
  Company Number: US-BRISTOL-MYERS SQUIBB COMPANY-16601809

PATIENT
  Age: 38 Year
  Sex: Male

DRUGS (3)
  1. BETAMETHASONE [Suspect]
     Dosage: BETAMETHASONE 12 MG IN 0.5 % LIDOCAINE, 1ML
  2. TRIAMCINOLONE ACETONIDE [Suspect]
     Dosage: TRIAMCINOLONE ACETONIDE 80 MG IN 0.5 % LIDOCAINE, 1 ML
  3. LIDOCAINE [Suspect]

REACTIONS (1)
  - HICCUPS [None]
